FAERS Safety Report 24711381 (Version 3)
Quarter: 2025Q3

REPORT INFORMATION
  Report Type: Report from Study
  Country: US (occurrence: US)
  Receive Date: 20241209
  Receipt Date: 20250708
  Transmission Date: 20251020
  Serious: No
  Sender: ABBVIE
  Company Number: US-ABBVIE-6033358

PATIENT
  Sex: Male

DRUGS (1)
  1. HUMIRA [Suspect]
     Active Substance: ADALIMUMAB
     Indication: Crohn^s disease
     Route: 058
     Dates: start: 20221226

REACTIONS (6)
  - Dysuria [Unknown]
  - Nasopharyngitis [Unknown]
  - Frequent bowel movements [Recovering/Resolving]
  - Adverse drug reaction [Unknown]
  - Weight decreased [Unknown]
  - Adverse food reaction [Unknown]
